FAERS Safety Report 10044964 (Version 3)
Quarter: 2014Q2

REPORT INFORMATION
  Report Type: Spontaneous
  Country: US (occurrence: US)
  Receive Date: 20140328
  Receipt Date: 20140624
  Transmission Date: 20141212
  Serious: Yes (Hospitalization, Other)
  Sender: FDA-Public Use
  Company Number: US-PFIZER INC-2014087784

PATIENT
  Age: 57 Year
  Sex: Male
  Weight: 87.98 kg

DRUGS (12)
  1. LYRICA [Suspect]
     Indication: BACK PAIN
     Dosage: 75 MG, 2X/DAY
     Route: 048
     Dates: start: 2005
  2. LYRICA [Suspect]
     Dosage: 75 MG, 3X/DAY
  3. NITROSTAT [Concomitant]
     Dosage: UNK
  4. ASPIRIN ^BAYER^ [Concomitant]
     Dosage: 81 MG, DAILY
     Route: 048
  5. FLEXERIL [Concomitant]
     Indication: MUSCLE SPASMS
     Dosage: 10 MG, 3 TIMES DAILY, AS NEEDED
     Route: 048
  6. NORCO [Concomitant]
     Indication: PAIN
     Dosage: 1 DF, (HYDROCODONE BITARTRATE 7.5 MG/ PARACETAMOL 325 MG) EVERY 4HOURS AS NEEDED
     Route: 048
  7. MELOXICAM [Concomitant]
     Dosage: UNK
     Route: 048
  8. PROPANOLOL [Concomitant]
     Dosage: UNK
     Route: 048
  9. PRAVACHOL [Concomitant]
     Dosage: 40 MG, DAILY
     Route: 048
  10. COREG [Concomitant]
     Dosage: 3.125 MG, 2X/DAY
  11. PLAVIX [Concomitant]
     Dosage: 75 MG, DAILY
     Route: 048
  12. NICODERM CQ [Concomitant]
     Dosage: 14 MG, CYCLIC (EVERY 24 HOURS)
     Route: 062

REACTIONS (1)
  - Acute myocardial infarction [Recovered/Resolved]
